FAERS Safety Report 9163166 (Version 2)
Quarter: 2013Q1

REPORT INFORMATION
  Report Type: Spontaneous
  Country: US (occurrence: US)
  Receive Date: 20130314
  Receipt Date: 20130318
  Transmission Date: 20140127
  Serious: Yes (Hospitalization, Other)
  Sender: FDA-Public Use
  Company Number: US-PFIZER INC-2013085351

PATIENT
  Age: 57 Year
  Sex: Male
  Weight: 63.49 kg

DRUGS (4)
  1. CHANTIX [Suspect]
     Indication: SMOKING CESSATION THERAPY
     Dosage: 0.5 MG, 1X/DAY
     Route: 048
     Dates: start: 20120717, end: 2012
  2. CHANTIX [Suspect]
     Dosage: 1 MG, 2X/DAY
     Route: 048
     Dates: start: 2012, end: 2012
  3. PHENOBARBITAL [Suspect]
     Indication: CONVULSION
     Dosage: 200 MG, 1X/DAY
     Dates: start: 201302, end: 201303
  4. HYDROCODONE [Concomitant]
     Indication: BACK PAIN
     Dosage: UNK

REACTIONS (9)
  - Convulsion [Not Recovered/Not Resolved]
  - Loss of consciousness [Unknown]
  - Brain injury [Unknown]
  - Road traffic accident [Unknown]
  - Drug intolerance [Unknown]
  - Somnolence [Unknown]
  - Mental disorder [Unknown]
  - Memory impairment [Unknown]
  - Injury [Unknown]
